FAERS Safety Report 19234764 (Version 1)
Quarter: 2021Q2

REPORT INFORMATION
  Report Type: Spontaneous
  Country: US (occurrence: US)
  Receive Date: 20210509
  Receipt Date: 20210509
  Transmission Date: 20210717
  Serious: No
  Sender: FDA-Public Use
  Company Number: US-ELI_LILLY_AND_COMPANY-US202105002995

PATIENT
  Sex: Female

DRUGS (1)
  1. HUMALOG [Suspect]
     Active Substance: INSULIN LISPRO
     Indication: TYPE 2 DIABETES MELLITUS
     Dosage: UNK UNK, PRN (10 UNITS BEFORE MEALS PLUS A CORRECTIVE DOSE)
     Route: 058
     Dates: start: 2016

REACTIONS (3)
  - Hyperhidrosis [Unknown]
  - Blood glucose increased [Not Recovered/Not Resolved]
  - Dysstasia [Unknown]
